FAERS Safety Report 25361776 (Version 1)
Quarter: 2025Q2

REPORT INFORMATION
  Report Type: Spontaneous
  Country: US (occurrence: US)
  Receive Date: 20250527
  Receipt Date: 20250527
  Transmission Date: 20250716
  Serious: No
  Sender: ROCHE
  Company Number: US-ROCHE-10000287484

PATIENT
  Age: 65 Year
  Sex: Female

DRUGS (2)
  1. RITUXAN [Suspect]
     Active Substance: RITUXIMAB
     Indication: Retroperitoneal fibrosis
     Route: 065
     Dates: start: 202412
  2. RITUXAN [Suspect]
     Active Substance: RITUXIMAB
     Route: 065
     Dates: start: 202501

REACTIONS (8)
  - Quality of life decreased [Unknown]
  - Cheilitis [Unknown]
  - Lip dry [Unknown]
  - Lip exfoliation [Unknown]
  - Off label use [Unknown]
  - Depression [Unknown]
  - Chapped lips [Unknown]
  - Lip haemorrhage [Unknown]

NARRATIVE: CASE EVENT DATE: 20250301
